FAERS Safety Report 4701174-5 (Version None)
Quarter: 2005Q2

REPORT INFORMATION
  Report Type: 
  Country: None (occurrence: None)
  Receive Date: 20050628
  Receipt Date: 20050615
  Transmission Date: 20051028
  Serious: Yes (Other)
  Sender: FDA-Public Use
  Company Number: GBWYE665213MAY05

PATIENT
  Sex: Female

DRUGS (4)
  1. ENBREL [Suspect]
     Indication: DRUG USE FOR UNKNOWN INDICATION
     Dosage: 25MG FREQUENCY UNKNOWN
     Route: 058
     Dates: start: 20040201
  2. NAPROSYN [Concomitant]
     Dosage: 500MG FREQUENCY UNKNOWN
     Route: 048
  3. AMITRIPTYLINE HCL [Concomitant]
     Dosage: 10MG FREQUENCY UNKNOWN
  4. PREDNISOLONE [Concomitant]

REACTIONS (3)
  - DRUG EXPOSURE DURING PREGNANCY [None]
  - INTRA-UTERINE DEATH [None]
  - PREGNANCY [None]
